FAERS Safety Report 4970060-8 (Version None)
Quarter: 2006Q2

REPORT INFORMATION
  Report Type: 
  Country: None (occurrence: None)
  Receive Date: 20060412
  Receipt Date: 20060403
  Transmission Date: 20061013
  Serious: Yes (Disabling)
  Sender: FDA-Public Use
  Company Number: 2006UW05830

PATIENT
  Age: 74 Year
  Sex: Female
  Weight: 77.1 kg

DRUGS (1)
  1. NEXIUM [Suspect]
     Indication: VOMITING
     Route: 048
     Dates: start: 20060124, end: 20060225

REACTIONS (6)
  - ABASIA [None]
  - DIFFICULTY IN WALKING [None]
  - LIMB INJURY [None]
  - LOSS OF CONTROL OF LEGS [None]
  - OEDEMA PERIPHERAL [None]
  - PHARYNGOLARYNGEAL PAIN [None]
